FAERS Safety Report 13738699 (Version 1)
Quarter: 2017Q3

REPORT INFORMATION
  Report Type: Report from Study
  Country: US (occurrence: US)
  Receive Date: 20170710
  Receipt Date: 20170710
  Transmission Date: 20171127
  Serious: Yes (Other)
  Sender: FDA-Public Use
  Company Number: US-SAOL THERAPEUTICS-2016SAO00973

PATIENT
  Age: 62 Year
  Sex: Female

DRUGS (12)
  1. COMPOUNDED BACLOFEN [Suspect]
     Active Substance: BACLOFEN
     Indication: LUMBAR RADICULOPATHY
     Dosage: 514.63 ?G, \DAY
     Route: 037
     Dates: start: 20160920
  2. COMPOUNDED BACLOFEN [Suspect]
     Active Substance: BACLOFEN
     Indication: POST LAMINECTOMY SYNDROME
     Dosage: 273.32 ?G, \DAY
     Route: 037
     Dates: start: 20161012
  3. DILAUDID [Suspect]
     Active Substance: HYDROMORPHONE HYDROCHLORIDE
     Dosage: 4.566 MG, \DAY
     Route: 037
     Dates: start: 20160920
  4. BUPIVACAINE. [Suspect]
     Active Substance: BUPIVACAINE
     Dosage: 9.133 MG, \DAY
     Route: 037
     Dates: start: 20160920
  5. BUPIVACAINE. [Suspect]
     Active Substance: BUPIVACAINE
     Dosage: 17.154 MG, \DAY
     Route: 037
     Dates: start: 20160920
  6. BUPIVACAINE. [Suspect]
     Active Substance: BUPIVACAINE
     Dosage: 21.726 MG, \DAY
     Route: 037
     Dates: start: 20161012
  7. COMPOUNDED BACLOFEN [Suspect]
     Active Substance: BACLOFEN
     Dosage: 434.53 ?G, \DAY
     Route: 037
     Dates: start: 20161012
  8. DILAUDID [Suspect]
     Active Substance: HYDROMORPHONE HYDROCHLORIDE
     Dosage: 8.577 MG, \DAY
     Route: 037
     Dates: start: 20160920
  9. COMPOUNDED BACLOFEN [Suspect]
     Active Substance: BACLOFEN
     Indication: PAIN
     Dosage: 273.98 ?G, \DAY
     Route: 037
     Dates: start: 20160920
  10. DILAUDID [Suspect]
     Active Substance: HYDROMORPHONE HYDROCHLORIDE
     Dosage: 4.5553 MG, \DAY
     Route: 037
     Dates: start: 20161012
  11. DILAUDID [Suspect]
     Active Substance: HYDROMORPHONE HYDROCHLORIDE
     Dosage: 7.2421 MG, \DAY
     Route: 037
     Dates: start: 20161012
  12. BUPIVACAINE. [Suspect]
     Active Substance: BUPIVACAINE
     Dosage: 13.666 MG, \DAY
     Route: 037
     Dates: start: 20161012

REACTIONS (5)
  - Therapy non-responder [Recovered/Resolved]
  - Device dislocation [Recovered/Resolved]
  - Pain [Recovered/Resolved]
  - Device failure [Recovered/Resolved]
  - Off label use [Unknown]

NARRATIVE: CASE EVENT DATE: 20161022
